FAERS Safety Report 9433444 (Version 3)
Quarter: 2013Q3

REPORT INFORMATION
  Report Type: Report from Study
  Country: US (occurrence: US)
  Receive Date: 20130731
  Receipt Date: 20130828
  Transmission Date: 20140515
  Serious: Yes (Other)
  Sender: FDA-Public Use
  Company Number: US-TEVA-422304USA

PATIENT
  Age: 40 Year
  Sex: Female

DRUGS (4)
  1. CLARAVIS [Suspect]
     Dosage: 60 MILLIGRAM DAILY;
     Route: 048
     Dates: start: 20130620, end: 20130721
  2. AMNESTEEM [Suspect]
     Dates: start: 20130524
  3. LEXAPRO [Concomitant]
     Indication: DEPRESSION
  4. BIRTH CONTROL PILLS [Concomitant]

REACTIONS (2)
  - Abortion spontaneous [Recovering/Resolving]
  - Unintended pregnancy [Recovered/Resolved]
